FAERS Safety Report 8863085 (Version 2)
Quarter: 2012Q4

REPORT INFORMATION
  Report Type: 
  Country: NL (occurrence: NL)
  Receive Date: 20121026
  Receipt Date: 20121106
  Transmission Date: 20130627
  Serious: Yes (Hospitalization)
  Sender: FDA-Public Use
  Company Number: NL-PFIZER INC-2012264955

PATIENT
  Sex: Female
  Weight: 88 kg

DRUGS (15)
  1. GENOTROPIN [Suspect]
     Indication: HYPOPITUITARISM
     Dosage: 0.8 mg, 7/wk
     Route: 058
     Dates: start: 20080331
  2. BECLOMETASONE [Concomitant]
     Indication: COPD
     Dosage: UNK
     Dates: start: 19950101
  3. CETIRIZINE [Concomitant]
     Indication: COPD
     Dosage: UNK
     Dates: start: 19950101
  4. SALBUTAMOL [Concomitant]
     Indication: COPD
     Dosage: UNK
     Dates: start: 19950101
  5. ESTROGEN NOS [Concomitant]
     Indication: LH BLOOD DECREASED
     Dosage: UNK
     Dates: start: 19990518
  6. ESTROGEN NOS [Concomitant]
     Indication: FSH DECREASED
  7. SEREVENT DISKUS [Concomitant]
     Indication: RESPIRATORY DISORDER
     Dosage: UNK
     Dates: start: 20041202
  8. PREVALIN [Concomitant]
     Indication: ALLERGY
     Dosage: UNK
     Dates: start: 20050505
  9. VENTOLINE DISKUS [Concomitant]
     Indication: RESPIRATORY DISORDER
     Dosage: UNK
     Dates: start: 20050608
  10. METOCLOPRAMIDE [Concomitant]
     Dosage: UNK
     Dates: start: 20050910
  11. LEVOTHYROXINE [Concomitant]
     Indication: TSH DECREASED
     Dosage: UNK
     Dates: start: 20040223
  12. DOMPERIDONE [Concomitant]
     Dosage: UNK
     Dates: start: 20070725
  13. OMEPRAZOL [Concomitant]
     Indication: GASTRIN SECRETION DISORDER
     Dosage: UNK
     Dates: start: 20030827
  14. TRAMADOL [Concomitant]
     Indication: PAIN
     Dosage: UNK
     Dates: start: 20070928
  15. FLUTICASONE [Concomitant]
     Indication: RESPIRATORY DISORDER
     Dosage: UNK
     Dates: start: 20070901

REACTIONS (1)
  - Limb operation [Unknown]
